FAERS Safety Report 17671833 (Version 1)
Quarter: 2020Q2

REPORT INFORMATION
  Report Type: Spontaneous
  Country: US (occurrence: US)
  Receive Date: 20200415
  Receipt Date: 20200415
  Transmission Date: 20200713
  Serious: Yes (Life-Threatening, Hospitalization)
  Sender: FDA-Public Use
  Company Number: US-TEVA-2020-US-1222342

PATIENT
  Age: 31 Year
  Sex: Female

DRUGS (1)
  1. PREDNISONE. [Suspect]
     Active Substance: PREDNISONE
     Indication: DERMATOMYOSITIS
     Route: 065

REACTIONS (4)
  - Acute pulmonary histoplasmosis [Recovering/Resolving]
  - Hypoxia [Recovering/Resolving]
  - Interstitial lung disease [Recovering/Resolving]
  - Respiratory distress [Recovering/Resolving]
